FAERS Safety Report 17479376 (Version 1)
Quarter: 2020Q1

REPORT INFORMATION
  Report Type: Spontaneous
  Country: JP (occurrence: JP)
  Receive Date: 20200228
  Receipt Date: 20200228
  Transmission Date: 20200409
  Serious: Yes (Life-Threatening)
  Sender: FDA-Public Use
  Company Number: JP-JNJFOC-20200238600

PATIENT
  Age: 65 Year
  Sex: Male

DRUGS (10)
  1. SEIBULE [Concomitant]
     Active Substance: MIGLITOL
     Indication: TYPE 2 DIABETES MELLITUS
     Dosage: 50 MILLIGRAM, BID
     Route: 048
     Dates: start: 20150214, end: 20160205
  2. SEIBULE [Concomitant]
     Active Substance: MIGLITOL
     Dosage: 50 MILLIGRAM, TID
     Route: 048
     Dates: start: 20160206, end: 20180111
  3. SEIBULE [Concomitant]
     Active Substance: MIGLITOL
     Dosage: 50 MILLIGRAM, BID
     Route: 048
     Dates: start: 20180112
  4. SUREPOST [Concomitant]
     Active Substance: REPAGLINIDE
     Indication: TYPE 2 DIABETES MELLITUS
     Dosage: 0.5 MILLIGRAM, BID
     Route: 048
     Dates: start: 20150214, end: 20160205
  5. EQUA [Concomitant]
     Active Substance: VILDAGLIPTIN
     Indication: TYPE 2 DIABETES MELLITUS
     Dosage: 50 MILLIGRAM, BID
     Route: 048
     Dates: start: 20130323
  6. METGLUCO [Concomitant]
     Active Substance: METFORMIN HYDROCHLORIDE
     Indication: TYPE 2 DIABETES MELLITUS
     Dosage: 500 MILLIGRAM, BID
     Route: 048
     Dates: start: 20150214, end: 20160205
  7. METGLUCO [Concomitant]
     Active Substance: METFORMIN HYDROCHLORIDE
     Dosage: 500 MILLIGRAM, TID
     Route: 048
     Dates: start: 20160206
  8. SUREPOST [Concomitant]
     Active Substance: REPAGLINIDE
     Dosage: 0.5 MILLIGRAM, BID
     Route: 048
     Dates: start: 20180112
  9. SUREPOST [Concomitant]
     Active Substance: REPAGLINIDE
     Dosage: 0.5 MILLIGRAM, TID
     Route: 048
     Dates: start: 20160206, end: 20180111
  10. CANAGLIFLOZIN [Suspect]
     Active Substance: CANAGLIFLOZIN
     Indication: TYPE 2 DIABETES MELLITUS
     Dosage: 100 MILLIGRAM, QD
     Route: 048
     Dates: start: 20160109, end: 20181001

REACTIONS (1)
  - Rectal cancer metastatic [Unknown]

NARRATIVE: CASE EVENT DATE: 20180322
